FAERS Safety Report 4491117-4 (Version None)
Quarter: 2004Q3

REPORT INFORMATION
  Report Type: 
  Country: None (occurrence: None)
  Receive Date: 20040927
  Receipt Date: 20040728
  Transmission Date: 20050211
  Serious: No
  Sender: FDA-Public Use
  Company Number: USA040773916

PATIENT
  Sex: Female

DRUGS (4)
  1. STRATTERA [Suspect]
     Indication: ATTENTION DEFICIT/HYPERACTIVITY DISORDER
     Dosage: 40 MG DAY
     Dates: start: 20040723
  2. LEXAPRO [Concomitant]
  3. BUSPAR [Concomitant]
  4. MULTIVITAMIN [Concomitant]

REACTIONS (3)
  - SINUS DISORDER [None]
  - STOMACH DISCOMFORT [None]
  - VISUAL ACUITY REDUCED [None]
